FAERS Safety Report 9753682 (Version 1)
Quarter: 2013Q4

REPORT INFORMATION
  Report Type: Spontaneous
  Country: US (occurrence: US)
  Receive Date: 20131213
  Receipt Date: 20131213
  Transmission Date: 20140711
  Serious: No
  Sender: FDA-Public Use
  Company Number: US-GILEAD-2009-0026128

PATIENT
  Age: 72 Year
  Sex: Male
  Weight: 85.73 kg

DRUGS (14)
  1. LETAIRIS [Suspect]
     Indication: PULMONARY ARTERIAL HYPERTENSION
     Route: 048
     Dates: start: 20080928
  2. REVATIO [Concomitant]
  3. COREG [Concomitant]
  4. AVANDIA [Concomitant]
  5. LASIX [Concomitant]
  6. PREDNISONE [Concomitant]
  7. NORVASC [Concomitant]
  8. ASA [Concomitant]
  9. ADVAIR DISKUS [Concomitant]
  10. PREVACID [Concomitant]
  11. CRESTOR [Concomitant]
  12. ZETIA [Concomitant]
  13. TRANDOLAPRIL [Concomitant]
  14. PERFOROMIST [Concomitant]

REACTIONS (2)
  - Hair disorder [Recovered/Resolved]
  - Hair colour changes [Recovered/Resolved]
